FAERS Safety Report 25912045 (Version 1)
Quarter: 2025Q4

REPORT INFORMATION
  Report Type: Spontaneous
  Country: US (occurrence: US)
  Receive Date: 20251013
  Receipt Date: 20251013
  Transmission Date: 20260117
  Serious: No
  Sender: RANBAXY
  Company Number: US-SUN PHARMACEUTICAL INDUSTRIES LTD-2025R1-514205

PATIENT
  Age: 35 Year
  Sex: Female

DRUGS (1)
  1. WINLEVI [Suspect]
     Active Substance: CLASCOTERONE
     Indication: Acne
     Dosage: UNK, BID (ONE NIGHT ONE MORNING)
     Route: 065
     Dates: start: 20250205

REACTIONS (3)
  - Skin burning sensation [Unknown]
  - Dry skin [Unknown]
  - Skin reaction [Unknown]
